FAERS Safety Report 15104658 (Version 1)
Quarter: 2018Q3

REPORT INFORMATION
  Report Type: Spontaneous
  Country: US (occurrence: US)
  Receive Date: 20180703
  Receipt Date: 20180703
  Transmission Date: 20181010
  Serious: No
  Sender: FDA-Public Use
  Company Number: US-BAUSCH-BL-2017-018936

PATIENT
  Age: 52 Year
  Sex: Female

DRUGS (1)
  1. BESIVANCE [Suspect]
     Active Substance: BESIFLOXACIN
     Indication: CORNEAL ABRASION
     Route: 047
     Dates: start: 20170608, end: 20170608

REACTIONS (5)
  - Lacrimation increased [Recovering/Resolving]
  - Eyelid oedema [Recovering/Resolving]
  - Swelling [Recovering/Resolving]
  - Nasal congestion [Recovering/Resolving]
  - Off label use [Recovered/Resolved]

NARRATIVE: CASE EVENT DATE: 20170608
